FAERS Safety Report 5393016-2 (Version None)
Quarter: 2007Q3

REPORT INFORMATION
  Report Type: 
  Country: None (occurrence: None)
  Receive Date: 20070719
  Receipt Date: 20070711
  Transmission Date: 20080115
  Serious: Yes (Hospitalization)
  Sender: FDA-Public Use
  Company Number: 2007-03274

PATIENT
  Age: 67 Year
  Sex: Female

DRUGS (5)
  1. PRIMIDONE [Suspect]
     Indication: TREMOR
     Dosage: 10 YEARS, ORAL
     Route: 048
  2. PREDNISONE [Suspect]
     Indication: POLYMYALGIA RHEUMATICA
     Dosage: 1 TABLET, DAILY, ORAL
     Route: 048
     Dates: start: 20070601
  3. PLAQUENIL [Suspect]
     Indication: POLYMYALGIA RHEUMATICA
     Dosage: ORAL
     Route: 048
     Dates: start: 20070101
  4. SYNTHROID [Concomitant]
  5. DIOVAN [Concomitant]

REACTIONS (6)
  - DRUG ERUPTION [None]
  - DRUG INTERACTION [None]
  - LOWER GASTROINTESTINAL HAEMORRHAGE [None]
  - PNEUMONIA [None]
  - POLYMYALGIA RHEUMATICA [None]
  - SYSTEMIC LUPUS ERYTHEMATOSUS [None]
